FAERS Safety Report 6535037-X (Version None)
Quarter: 2010Q1

REPORT INFORMATION
  Report Type: 
  Country: None (occurrence: None)
  Receive Date: 20100112
  Receipt Date: 20100104
  Transmission Date: 20100710
  Serious: Yes (Death)
  Sender: FDA-Public Use
  Company Number: BE-GILEAD-2009-0025940

PATIENT
  Sex: Female
  Weight: 57 kg

DRUGS (3)
  1. VIREAD [Suspect]
     Indication: HEPATITIS B
  2. LITICAN [Suspect]
     Indication: NAUSEA
     Route: 042
     Dates: start: 20090923, end: 20090923
  3. MORPHINE [Concomitant]
     Indication: PAIN
     Route: 042
     Dates: start: 20090923, end: 20090924

REACTIONS (1)
  - HEPATIC FAILURE [None]
